FAERS Safety Report 23664431 (Version 2)
Quarter: 2024Q2

REPORT INFORMATION
  Report Type: Spontaneous
  Country: US (occurrence: US)
  Receive Date: 20240322
  Receipt Date: 20240420
  Transmission Date: 20240716
  Serious: Yes (Hospitalization)
  Sender: FDA-Public Use
  Company Number: US-BRISTOL-MYERS SQUIBB COMPANY-2024-045367

PATIENT
  Age: 74 Year
  Sex: Female

DRUGS (1)
  1. REVLIMID [Suspect]
     Active Substance: LENALIDOMIDE
     Indication: Plasma cell myeloma
     Dosage: TAKE 1 CAPSULE (10MG) BY MOUTH WHOLE WITH WATER AT SAME TIME EVERY DAY ON DAYS 1-21 OF EACH 28 DAY C
     Route: 048
     Dates: start: 20230801, end: 2024

REACTIONS (6)
  - Cardiac disorder [Recovered/Resolved]
  - Fall [Unknown]
  - Peripheral swelling [Unknown]
  - Malaise [Not Recovered/Not Resolved]
  - Pain [Recovered/Resolved]
  - Decreased appetite [Recovering/Resolving]

NARRATIVE: CASE EVENT DATE: 20240101
